FAERS Safety Report 9570549 (Version 2)
Quarter: 2013Q4

REPORT INFORMATION
  Report Type: Spontaneous
  Country: US (occurrence: US)
  Receive Date: 20131001
  Receipt Date: 20131021
  Transmission Date: 20140711
  Serious: No
  Sender: FDA-Public Use
  Company Number: US-009507513-1309USA013906

PATIENT
  Age: 72 Year
  Sex: Male

DRUGS (5)
  1. ASMANEX TWISTHALER [Suspect]
     Indication: BRONCHITIS
     Dosage: 2 PUFFS / 4 TIMES A DAY
     Route: 055
     Dates: start: 20130816
  2. FORADIL [Concomitant]
     Dosage: UNK
  3. SINGULAIR [Concomitant]
     Dosage: UNK
  4. PRILOSEC [Concomitant]
     Dosage: UNK
  5. VITAMINS (UNSPECIFIED) [Concomitant]
     Dosage: UNK

REACTIONS (7)
  - Muscle fatigue [Not Recovered/Not Resolved]
  - Musculoskeletal stiffness [Not Recovered/Not Resolved]
  - Adverse event [Not Recovered/Not Resolved]
  - Dysgeusia [Not Recovered/Not Resolved]
  - Incorrect dose administered [Unknown]
  - Product odour abnormal [Unknown]
  - Drug ineffective [Not Recovered/Not Resolved]
